FAERS Safety Report 4730734-0 (Version None)
Quarter: 2005Q3

REPORT INFORMATION
  Report Type: 
  Country: None (occurrence: None)
  Receive Date: 20050725
  Receipt Date: 20050218
  Transmission Date: 20060218
  Serious: No
  Sender: FDA-Public Use
  Company Number: USA050291470

PATIENT
  Age: 5 Year
  Sex: Male

DRUGS (2)
  1. STRATTERA [Suspect]
     Indication: ATTENTION DEFICIT/HYPERACTIVITY DISORDER
  2. METADATE(METHYLPHENIDATE HYDROCHLORIDE) [Concomitant]

REACTIONS (4)
  - ABNORMAL BEHAVIOUR [None]
  - BALANCE DISORDER [None]
  - MUSCLE TWITCHING [None]
  - PRESCRIBED OVERDOSE [None]
